FAERS Safety Report 18282874 (Version 3)
Quarter: 2020Q4

REPORT INFORMATION
  Report Type: Report from Study
  Country: US (occurrence: US)
  Receive Date: 20200918
  Receipt Date: 20201208
  Transmission Date: 20210113
  Serious: Yes (Other)
  Sender: FDA-Public Use
  Company Number: US-PFIZER INC-2020326812

PATIENT
  Age: 38 Year
  Sex: Female
  Weight: 68.03 kg

DRUGS (10)
  1. WARFARIN [Suspect]
     Active Substance: WARFARIN
     Indication: PULMONARY EMBOLISM
  2. SILDENAFIL CITRATE. [Suspect]
     Active Substance: SILDENAFIL CITRATE
     Indication: PULMONARY ARTERIAL HYPERTENSION
     Dosage: UNK
  3. REMODULIN [Suspect]
     Active Substance: TREPROSTINIL
     Dosage: 0.027 UG/KG
     Route: 042
     Dates: start: 2020
  4. REMODULIN [Suspect]
     Active Substance: TREPROSTINIL
     Indication: PULMONARY ARTERIAL HYPERTENSION
     Dosage: 2.5 MG/ML
     Route: 042
     Dates: start: 20200716
  5. REMODULIN [Suspect]
     Active Substance: TREPROSTINIL
     Dosage: 0.033 UG/KG
     Route: 042
     Dates: start: 2020
  6. WARFARIN [Suspect]
     Active Substance: WARFARIN
     Indication: DEEP VEIN THROMBOSIS
     Dosage: UNK
  7. REMODULIN [Suspect]
     Active Substance: TREPROSTINIL
     Dosage: 0.017 UG/KG
     Route: 042
     Dates: start: 2020
  8. REMODULIN [Suspect]
     Active Substance: TREPROSTINIL
     Dosage: 0.03 UG/KG
     Route: 042
     Dates: start: 2020
  9. REMODULIN [Suspect]
     Active Substance: TREPROSTINIL
     Dosage: 0.023 UG/KG, IV DRIP
     Route: 042
     Dates: start: 2020
  10. OPSUMIT [Concomitant]
     Active Substance: MACITENTAN
     Dosage: UNK

REACTIONS (15)
  - Diarrhoea [Not Recovered/Not Resolved]
  - Haematoma [Recovered/Resolved]
  - Blood pressure decreased [Recovered/Resolved]
  - Weight decreased [Not Recovered/Not Resolved]
  - Headache [Recovered/Resolved]
  - Pain in jaw [Not Recovered/Not Resolved]
  - Catheter site pain [Unknown]
  - Tinnitus [Recovered/Resolved]
  - Blood potassium decreased [Recovered/Resolved]
  - Vomiting [Not Recovered/Not Resolved]
  - Dyspepsia [Not Recovered/Not Resolved]
  - Vaginal haemorrhage [Not Recovered/Not Resolved]
  - Pain in extremity [Recovered/Resolved]
  - Catheter site swelling [Unknown]
  - Dizziness [Recovered/Resolved]

NARRATIVE: CASE EVENT DATE: 2020
